FAERS Safety Report 5294924-3 (Version None)
Quarter: 2007Q2

REPORT INFORMATION
  Report Type: 
  Country: None (occurrence: None)
  Receive Date: 20070411
  Receipt Date: 20070220
  Transmission Date: 20071010
  Serious: Yes (Hospitalization)
  Sender: FDA-Public Use
  Company Number: DL2007048

PATIENT
  Age: 24 Year
  Sex: Female

DRUGS (4)
  1. MIFEPRISTONE TABLETS, 200 MG (DANCO LABS) [Suspect]
     Indication: ABORTION INDUCED
     Dosage: 200 MG, ORAL
     Route: 048
     Dates: start: 20070104
  2. MISOPROSTOL [Suspect]
     Dosage: SEE IMAGE
     Route: 067
     Dates: start: 20070105
  3. MISOPROSTOL [Suspect]
     Dosage: SEE IMAGE
     Route: 067
     Dates: start: 20070109
  4. MISOPROSTOL [Suspect]
     Dosage: SEE IMAGE
     Route: 067
     Dates: start: 20070110

REACTIONS (2)
  - ANAEMIA [None]
  - MENORRHAGIA [None]
